FAERS Safety Report 16329490 (Version 1)
Quarter: 2019Q2

REPORT INFORMATION
  Report Type: Report from Study
  Country: US (occurrence: US)
  Receive Date: 20190520
  Receipt Date: 20190520
  Transmission Date: 20190711
  Serious: Yes (Other)
  Sender: FDA-Public Use
  Company Number: US-UCBSA-2019000639

PATIENT
  Age: 71 Year
  Sex: Female
  Weight: 207 kg

DRUGS (2)
  1. CERTOLIZUMAB PEGOL [Suspect]
     Active Substance: CERTOLIZUMAB PEGOL
     Indication: RHEUMATOID ARTHRITIS
     Dosage: 400 MG, EV 4 WEEKS
     Dates: start: 201812
  2. CERTOLIZUMAB PEGOL [Suspect]
     Active Substance: CERTOLIZUMAB PEGOL
     Dosage: 400 MILLIGRAM, MONTHLY (QM)
     Dates: start: 20190301

REACTIONS (9)
  - Rheumatoid arthritis [Not Recovered/Not Resolved]
  - Onychomycosis [Unknown]
  - Back pain [Not Recovered/Not Resolved]
  - Concussion [Not Recovered/Not Resolved]
  - Fall [Recovered/Resolved]
  - Sinusitis [Recovered/Resolved]
  - Mouth ulceration [Recovered/Resolved]
  - Tinea infection [Recovering/Resolving]
  - Tremor [Unknown]

NARRATIVE: CASE EVENT DATE: 201812
